FAERS Safety Report 4829956-X (Version None)
Quarter: 2005Q4

REPORT INFORMATION
  Report Type: 
  Country: None (occurrence: None)
  Receive Date: 20051115
  Receipt Date: 20051115
  Transmission Date: 20060501
  Serious: Yes (Hospitalization)
  Sender: FDA-Public Use
  Company Number: None

PATIENT
  Sex: Male
  Weight: 97.5234 kg

DRUGS (15)
  1. WARFARIN [Suspect]
     Indication: DEEP VEIN THROMBOSIS
     Dosage: 32.5MG/WEEK
     Dates: start: 20050322, end: 20050906
  2. WARFARIN [Suspect]
     Indication: DISEASE RECURRENCE
     Dosage: 32.5MG/WEEK
     Dates: start: 20050322, end: 20050906
  3. WARFARIN [Suspect]
     Indication: THROMBOSIS PROPHYLAXIS
     Dosage: 32.5MG/WEEK
     Dates: start: 20050322, end: 20050906
  4. ATENOLOL [Concomitant]
  5. IPRATROPIUM BROMIDE [Concomitant]
  6. LISINOPRIL [Concomitant]
  7. FLUOCINONIDE [Concomitant]
  8. TAMSULOSIN [Concomitant]
  9. FUROSEMIDE [Concomitant]
  10. GLIPIZIDE [Concomitant]
  11. METOCLOPRAMIDE [Concomitant]
  12. DOCUSATE [Concomitant]
  13. OXYCODONE [Concomitant]
  14. MORPHINE SO4 [Concomitant]
  15. PEG [Concomitant]

REACTIONS (8)
  - ASTHENIA [None]
  - CONSTIPATION [None]
  - EPISTAXIS [None]
  - FATIGUE [None]
  - HAEMATEMESIS [None]
  - HAEMORRHAGE [None]
  - ORAL INTAKE REDUCED [None]
  - PANCYTOPENIA [None]
